FAERS Safety Report 9500019 (Version 3)
Quarter: 2013Q4

REPORT INFORMATION
  Report Type: Spontaneous
  Country: US (occurrence: None)
  Receive Date: 20130107
  Receipt Date: 20131226
  Transmission Date: 20140711
  Serious: Yes (Other)
  Sender: FDA-Public Use
  Company Number: PHEH2012US021846

PATIENT
  Age: 30 Year
  Sex: Female
  Weight: 76 kg

DRUGS (1)
  1. GILENYA [Suspect]
     Indication: MULTIPLE SCLEROSIS
     Route: 048
     Dates: start: 20121004

REACTIONS (5)
  - Oropharyngeal pain [None]
  - Nasal congestion [None]
  - Hypersensitivity [None]
  - Pyrexia [None]
  - Oral candidiasis [None]
